FAERS Safety Report 6042045-4 (Version None)
Quarter: 2009Q1

REPORT INFORMATION
  Report Type: 
  Country: None (occurrence: None)
  Receive Date: 20090116
  Receipt Date: 20090109
  Transmission Date: 20090719
  Serious: Yes (Hospitalization)
  Sender: FDA-Public Use
  Company Number: DE-ABBOTT-09P-062-0496727-00

PATIENT
  Sex: Male
  Weight: 100 kg

DRUGS (4)
  1. HUMIRA [Suspect]
     Indication: CROHN'S DISEASE
     Route: 058
     Dates: start: 20080601, end: 20080912
  2. AZATHIOPRINE [Concomitant]
     Indication: CROHN'S DISEASE
  3. NAPROXEN [Concomitant]
     Indication: PAIN
     Route: 048
  4. RAMIPRIL [Concomitant]
     Indication: HYPERTENSION
     Route: 048
     Dates: start: 20080301

REACTIONS (7)
  - ANAL ABSCESS [None]
  - ARTHRALGIA [None]
  - CHEST PAIN [None]
  - DECREASED ACTIVITY [None]
  - DIARRHOEA HAEMORRHAGIC [None]
  - DYSPNOEA EXERTIONAL [None]
  - HEADACHE [None]
